FAERS Safety Report 13044799 (Version 1)
Quarter: 2016Q4

REPORT INFORMATION
  Report Type: Spontaneous
  Country: US (occurrence: US)
  Receive Date: 20161220
  Receipt Date: 20161220
  Transmission Date: 20170207
  Serious: No
  Sender: FDA-Public Use
  Company Number: US-ROCHE-1048102

PATIENT
  Sex: Female

DRUGS (1)
  1. ZELBORAF [Suspect]
     Active Substance: VEMURAFENIB
     Indication: MALIGNANT MELANOMA
     Route: 065

REACTIONS (14)
  - Skin exfoliation [Unknown]
  - Photosensitivity reaction [Unknown]
  - Feeling hot [Unknown]
  - Cough [Recovered/Resolved]
  - Skin mass [Unknown]
  - Alopecia areata [Unknown]
  - Skin discolouration [Unknown]
  - Weight decreased [Unknown]
  - Skin papilloma [Unknown]
  - Diarrhoea [Recovered/Resolved]
  - Dry skin [Unknown]
  - Sunburn [Unknown]
  - Alopecia [Unknown]
  - Rash [Unknown]
